FAERS Safety Report 24244749 (Version 1)
Quarter: 2024Q3

REPORT INFORMATION
  Report Type: Report from Study
  Country: CA (occurrence: CA)
  Receive Date: 20240823
  Receipt Date: 20240823
  Transmission Date: 20241017
  Serious: Yes (Hospitalization, Other)
  Sender: DAIICHI
  Company Number: CA-AstraZeneca-2022A223905

PATIENT
  Sex: Female

DRUGS (1)
  1. ENHERTU [Suspect]
     Active Substance: FAM-TRASTUZUMAB DERUXTECAN-NXKI
     Indication: HER2 positive breast cancer
     Dosage: 351 MG, ONCE EVERY 3 WK
     Route: 042
     Dates: start: 20211215

REACTIONS (4)
  - Peripheral swelling [Unknown]
  - Skin discolouration [Unknown]
  - Transient ischaemic attack [Unknown]
  - Hypoglycaemia [Unknown]
